FAERS Safety Report 6716692-8 (Version None)
Quarter: 2010Q2

REPORT INFORMATION
  Report Type: 
  Country: None (occurrence: None)
  Receive Date: 20100510
  Receipt Date: 20100430
  Transmission Date: 20101027
  Serious: Yes (Hospitalization)
  Sender: FDA-Public Use
  Company Number: US-BIOGENIDEC-2010BI014534

PATIENT
  Age: 27 Year
  Sex: Male

DRUGS (1)
  1. AVONEX [Suspect]
     Indication: MULTIPLE SCLEROSIS
     Route: 030
     Dates: start: 20051104

REACTIONS (6)
  - DEVICE INTOLERANCE [None]
  - FATIGUE [None]
  - FIBULA FRACTURE [None]
  - FOOT FRACTURE [None]
  - MUSCLE ATROPHY [None]
  - ROAD TRAFFIC ACCIDENT [None]
